FAERS Safety Report 19316601 (Version 1)
Quarter: 2021Q2

REPORT INFORMATION
  Report Type: Report from Study
  Country: US (occurrence: US)
  Receive Date: 20210527
  Receipt Date: 20210527
  Transmission Date: 20210717
  Serious: Yes (Death, Other)
  Sender: FDA-Public Use
  Company Number: US-ASTELLAS-2021US018888

PATIENT
  Sex: Male

DRUGS (2)
  1. ASP2215 [Suspect]
     Active Substance: GILTERITINIB
     Indication: ACUTE MYELOID LEUKAEMIA
  2. ASP2215 [Suspect]
     Active Substance: GILTERITINIB
     Indication: FLT3 GENE MUTATION
     Dosage: UNK UNK, UNKNOWN FREQ.
     Route: 065

REACTIONS (3)
  - Therapy non-responder [Unknown]
  - Death [Fatal]
  - Pancytopenia [Unknown]
